FAERS Safety Report 5070308-8 (Version None)
Quarter: 2006Q3

REPORT INFORMATION
  Report Type: 
  Country: None (occurrence: None)
  Receive Date: 20060731
  Receipt Date: 20060718
  Transmission Date: 20061208
  Serious: Yes (Other)
  Sender: FDA-Public Use
  Company Number: US017951

PATIENT
  Age: 54 Year
  Sex: Male

DRUGS (1)
  1. TRISENOX [Suspect]

REACTIONS (1)
  - WHITE BLOOD CELL COUNT DECREASED [None]
